FAERS Safety Report 5280611-4 (Version None)
Quarter: 2007Q1

REPORT INFORMATION
  Report Type: 
  Country: None (occurrence: None)
  Receive Date: 20061215
  Receipt Date: 20060112
  Transmission Date: 20070707
  Serious: Yes (Other)
  Sender: FDA-Public Use
  Company Number: HQWYE367816JAN06

PATIENT
  Age: 61 Year
  Sex: Female
  Weight: 68.1 kg

DRUGS (8)
  1. EFFEXOR XR [Suspect]
     Indication: DEPRESSION
     Dosage: SEE IMAGE
     Route: 048
     Dates: end: 20041001
  2. EFFEXOR XR [Suspect]
     Indication: DEPRESSION
     Dosage: SEE IMAGE
     Route: 048
     Dates: start: 20041001, end: 20051201
  3. EFFEXOR XR [Suspect]
     Indication: DEPRESSION
     Dosage: SEE IMAGE
     Route: 048
     Dates: start: 20020901
  4. DEXEDRINE [Concomitant]
  5. ADDERALL (AMFETAMIE ASPARTATE/AMFETAMINE SULFATE/DEXAMFETAMINE SACCHAR [Concomitant]
  6. RITALIN [Concomitant]
  7. WELLBUTRIN [Concomitant]
  8. KLONOPIN [Concomitant]

REACTIONS (5)
  - BRONCHITIS [None]
  - CATARACT [None]
  - DRUG EFFECT DECREASED [None]
  - HYPOMANIA [None]
  - INSOMNIA [None]
